FAERS Safety Report 22313900 (Version 1)
Quarter: 2023Q2

REPORT INFORMATION
  Report Type: Spontaneous
  Country: US (occurrence: US)
  Receive Date: 20230512
  Receipt Date: 20230512
  Transmission Date: 20230722
  Serious: No
  Sender: FDA-Public Use
  Company Number: US-SANOFI-01607242

PATIENT
  Age: 59 Year
  Sex: Female

DRUGS (3)
  1. DUPIXENT [Suspect]
     Active Substance: DUPILUMAB
     Indication: Pruritus
     Dosage: UNK
     Dates: start: 20221228
  2. DUPIXENT [Suspect]
     Active Substance: DUPILUMAB
     Indication: Dermatitis
     Dosage: UNK UNK, 1X
     Dates: start: 202301, end: 202301
  3. DUPIXENT [Suspect]
     Active Substance: DUPILUMAB
     Dosage: UNK, QOW
     Dates: end: 20230308

REACTIONS (2)
  - Hypoaesthesia [Not Recovered/Not Resolved]
  - Product use in unapproved indication [Unknown]

NARRATIVE: CASE EVENT DATE: 20221228
